FAERS Safety Report 6762447-8 (Version None)
Quarter: 2010Q2

REPORT INFORMATION
  Report Type: 
  Country: None (occurrence: None)
  Receive Date: 20100609
  Receipt Date: 20100528
  Transmission Date: 20101027
  Serious: Yes (Hospitalization)
  Sender: FDA-Public Use
  Company Number: DE-ELI_LILLY_AND_COMPANY-DE201002005673

PATIENT
  Sex: Female
  Weight: 62.5 kg

DRUGS (3)
  1. ZYPREXA [Suspect]
     Indication: SCHIZOPHRENIA, PARANOID TYPE
     Dosage: UNK, UNK
  2. ZYPREXA [Suspect]
     Dosage: 5 MG, UNK
     Route: 048
     Dates: end: 20091009
  3. AMISULPRIDE [Concomitant]
     Dosage: 400 MG, DAILY (1/D)

REACTIONS (4)
  - LEUKOPENIA [None]
  - NEUTROPENIA [None]
  - RED BLOOD CELL COUNT DECREASED [None]
  - SCHIZOPHRENIA, PARANOID TYPE [None]
